FAERS Safety Report 22800210 (Version 6)
Quarter: 2024Q3

REPORT INFORMATION
  Report Type: Report from Study
  Country: US (occurrence: US)
  Receive Date: 20230808
  Receipt Date: 20240731
  Transmission Date: 20241017
  Serious: Yes (Hospitalization)
  Sender: NOVARTIS
  Company Number: US-002147023-NVSC2023US168084

PATIENT
  Age: 3 Month
  Sex: Female
  Weight: 7.055 kg

DRUGS (12)
  1. ZOLGENSMA [Suspect]
     Active Substance: ONASEMNOGENE ABEPARVOVEC-XIOI
     Indication: Spinal muscular atrophy
     Dosage: 30.3 ML, ONCE/SINGLE
     Route: 042
     Dates: start: 20200729, end: 20200729
  2. PREDNISOLONE [Concomitant]
     Active Substance: PREDNISOLONE
     Indication: Product used for unknown indication
     Dosage: 6 MG
     Route: 065
     Dates: start: 20200727, end: 20200912
  3. PREDNISOLONE [Concomitant]
     Active Substance: PREDNISOLONE
     Dosage: 12 MG
     Route: 065
     Dates: start: 20200912, end: 20201014
  4. PREDNISOLONE [Concomitant]
     Active Substance: PREDNISOLONE
     Dosage: 9 MG
     Route: 065
     Dates: start: 20201015, end: 20201021
  5. PREDNISOLONE [Concomitant]
     Active Substance: PREDNISOLONE
     Dosage: 6 MG
     Route: 065
     Dates: start: 20201022, end: 20201028
  6. PREDNISOLONE [Concomitant]
     Active Substance: PREDNISOLONE
     Dosage: 3 MG
     Route: 065
     Dates: start: 20201029, end: 20201104
  7. PREDNISOLONE [Concomitant]
     Active Substance: PREDNISOLONE
     Dosage: 1.5 MG
     Route: 065
     Dates: start: 20201105, end: 20201111
  8. NUSINERSEN [Concomitant]
     Active Substance: NUSINERSEN
     Indication: Product used for unknown indication
     Dosage: UNK (DOSE 1)
     Route: 065
     Dates: start: 20220421
  9. NUSINERSEN [Concomitant]
     Active Substance: NUSINERSEN
     Dosage: UNK (DOSE 2)
     Route: 065
     Dates: start: 20220628
  10. NUSINERSEN [Concomitant]
     Active Substance: NUSINERSEN
     Dosage: UNK (DOSE 3)
     Route: 065
     Dates: start: 20220712
  11. NUSINERSEN [Concomitant]
     Active Substance: NUSINERSEN
     Dosage: UNK (DOSE 4)
     Route: 065
     Dates: start: 20220726
  12. NUSINERSEN [Concomitant]
     Active Substance: NUSINERSEN
     Dosage: UNK (MAINTENANCE)
     Route: 065
     Dates: start: 20220830

REACTIONS (4)
  - Blood creatine phosphokinase MB increased [Unknown]
  - Troponin I increased [Recovered/Resolved]
  - Gamma-glutamyltransferase increased [Recovered/Resolved]
  - Weight increased [Recovered/Resolved]

NARRATIVE: CASE EVENT DATE: 20200909
